FAERS Safety Report 8138453-8 (Version None)
Quarter: 2012Q1

REPORT INFORMATION
  Report Type: 
  Country: None (occurrence: None)
  Receive Date: 20120215
  Receipt Date: 20120213
  Transmission Date: 20120608
  Serious: Yes (Hospitalization, Other)
  Sender: FDA-Public Use
  Company Number: SE-BAYER-2011-040311

PATIENT
  Age: 39 Year
  Sex: Female

DRUGS (1)
  1. MIRENA [Suspect]
     Indication: CONTRACEPTION
     Dosage: 20 MCG/24HR, CONT
     Route: 015
     Dates: start: 20100921

REACTIONS (8)
  - PYREXIA [None]
  - BLOOD PRESSURE FLUCTUATION [None]
  - PREGNANCY WITH CONTRACEPTIVE DEVICE [None]
  - PNEUMONIA MYCOPLASMAL [None]
  - SEPSIS [None]
  - PROCEDURAL PAIN [None]
  - CONSTIPATION [None]
  - DEVICE DISLOCATION [None]
